FAERS Safety Report 8615573 (Version 2)
Quarter: 2012Q4

REPORT INFORMATION
  Report Type: 
  Country: US (occurrence: US)
  Receive Date: 20120614
  Receipt Date: 20120927
  Transmission Date: 20130627
  Serious: No
  Sender: FDA-Public Use
  Company Number: US-AMGEN-USASP2012026805

PATIENT
  Age: 65 Year
  Sex: Female
  Weight: 65.76 kg

DRUGS (1)
  1. PROLIA [Suspect]
     Indication: OSTEOPENIA
     Dosage: 60 mg, q6mo
     Dates: start: 20120328

REACTIONS (3)
  - Arthralgia [Recovering/Resolving]
  - Bone pain [Unknown]
  - Musculoskeletal pain [Unknown]
